FAERS Safety Report 16986505 (Version 2)
Quarter: 2019Q4

REPORT INFORMATION
  Report Type: Report from Study
  Country: US (occurrence: US)
  Receive Date: 20191101
  Receipt Date: 20191121
  Transmission Date: 20200122
  Serious: Yes (Hospitalization)
  Sender: FDA-Public Use
  Company Number: US-ACTELION-A-NJ2019-196381

PATIENT
  Age: 72 Year
  Sex: Female
  Weight: 65.76 kg

DRUGS (1)
  1. OPSUMIT [Suspect]
     Active Substance: MACITENTAN
     Indication: PULMONARY HYPERTENSION
     Dosage: 10 MG, QD
     Route: 048
     Dates: start: 201908, end: 20191001

REACTIONS (13)
  - Swelling [Recovered/Resolved]
  - Paracentesis [Recovered/Resolved]
  - Cardiac failure congestive [Unknown]
  - Product dose omission [Recovered/Resolved]
  - Oedema [Unknown]
  - Pulmonary arterial hypertension [Unknown]
  - Oedema peripheral [Recovered/Resolved]
  - Coronary artery disease [Unknown]
  - Muscular weakness [Not Recovered/Not Resolved]
  - Abdominal distension [Recovered/Resolved]
  - Gait disturbance [Unknown]
  - Therapy non-responder [Unknown]
  - Dyspnoea [Unknown]

NARRATIVE: CASE EVENT DATE: 201909
